FAERS Safety Report 8404683-0 (Version None)
Quarter: 2012Q2

REPORT INFORMATION
  Report Type: 
  Country: None (occurrence: None)
  Receive Date: 20120601
  Receipt Date: 20120531
  Transmission Date: 20120825
  Serious: Yes (Death, Hospitalization)
  Sender: FDA-Public Use
  Company Number: DE-ROCHE-741186

PATIENT
  Age: 69 Year
  Sex: Female
  Weight: 65.2 kg

DRUGS (11)
  1. CYCLOPHOSPHAMIDE [Suspect]
     Indication: CHRONIC LYMPHOCYTIC LEUKAEMIA
     Route: 042
  2. MABTHERA [Suspect]
     Indication: CHRONIC LYMPHOCYTIC LEUKAEMIA
     Route: 042
  3. DEXAMETHASONE [Concomitant]
     Dosage: TOTAL DOSE: 8 MG
  4. GRANISETRON [Concomitant]
     Dosage: TOTAL DOSE:2 MG
  5. LOPERAMIDE [Concomitant]
     Dosage: TOTAL DOSE: 2 MG
  6. GRANISETRON HYDROCHLORIDE [Concomitant]
     Dosage: TOTAL DOSE: 1 MG
  7. ZOFRAN [Concomitant]
     Dosage: TOTAL DOSE: 8 MG
  8. DIPYRONE TAB [Concomitant]
     Dosage: TOTAL DOSE: 40 MG
  9. RANITIDINE [Concomitant]
     Dosage: TOTAL DOSE: 50 MG
  10. FLUDARABINE PHOSPHATE [Suspect]
     Indication: CHRONIC LYMPHOCYTIC LEUKAEMIA
     Route: 042
  11. CLEMASTINE FUMARATE [Concomitant]
     Dosage: TOTAL DOSE: 0.5 MG

REACTIONS (2)
  - NEUTROPENIC COLITIS [None]
  - COLITIS [None]
